FAERS Safety Report 4749375-4 (Version None)
Quarter: 2005Q3

REPORT INFORMATION
  Report Type: 
  Country: None (occurrence: None)
  Receive Date: 20050819
  Receipt Date: 20050728
  Transmission Date: 20060218
  Serious: Yes (Death)
  Sender: FDA-Public Use
  Company Number: US-MERCK-0508USA00008

PATIENT
  Age: 79 Year
  Sex: Female
  Weight: 101 kg

DRUGS (1)
  1. VIOXX [Suspect]
     Indication: OSTEOARTHRITIS
     Route: 048
     Dates: start: 20030820

REACTIONS (6)
  - ACUTE CORONARY SYNDROME [None]
  - CARDIAC ARREST [None]
  - CHEST PAIN [None]
  - DIVERTICULUM [None]
  - DYSPNOEA [None]
  - HYPERTHYROIDISM [None]
